FAERS Safety Report 14993297 (Version 1)
Quarter: 2018Q2

REPORT INFORMATION
  Report Type: Spontaneous
  Country: IT (occurrence: IT)
  Receive Date: 20180610
  Receipt Date: 20180610
  Transmission Date: 20180711
  Serious: Yes (Death)
  Sender: FDA-Public Use
  Company Number: PHHY2018IT014300

PATIENT
  Age: 68 Year
  Sex: Female

DRUGS (2)
  1. METHYLPREDNISOLONE. [Suspect]
     Active Substance: METHYLPREDNISOLONE
     Indication: BREAST CANCER
     Dosage: 8 MG, UNK (DAY 17TH AND 30TH)
     Route: 048
     Dates: start: 201412
  2. CAPECITABINE. [Suspect]
     Active Substance: CAPECITABINE
     Indication: BREAST CANCER
     Dosage: 3500 MG, UNK
     Route: 048
     Dates: start: 201412

REACTIONS (4)
  - Hepatitis B reactivation [Fatal]
  - Hepatic encephalopathy [Fatal]
  - Hepatic failure [Fatal]
  - Hepatic necrosis [Fatal]
